FAERS Safety Report 17270532 (Version 1)
Quarter: 2020Q1

REPORT INFORMATION
  Report Type: Report from Study
  Country: JP (occurrence: JP)
  Receive Date: 20200114
  Receipt Date: 20200114
  Transmission Date: 20200409
  Serious: Yes (Hospitalization)
  Sender: FDA-Public Use
  Company Number: JP-ELI_LILLY_AND_COMPANY-JP201909013809

PATIENT
  Age: 69 Year
  Sex: Male

DRUGS (1)
  1. BARICITINIB [Suspect]
     Active Substance: BARICITINIB
     Indication: RHEUMATOID ARTHRITIS
     Dosage: 4 MG, DAILY
     Route: 048
     Dates: start: 20190710

REACTIONS (2)
  - Pancreatitis acute [Recovered/Resolved]
  - Gastroenteritis [Recovering/Resolving]

NARRATIVE: CASE EVENT DATE: 20190903
